FAERS Safety Report 22242784 (Version 1)
Quarter: 2023Q2

REPORT INFORMATION
  Report Type: Spontaneous
  Country: US (occurrence: None)
  Receive Date: 20230421
  Receipt Date: 20230421
  Transmission Date: 20230721
  Serious: Yes (unspecified)
  Sender: FDA-Public Use
  Company Number: None

PATIENT
  Age: 66 Year
  Sex: Female
  Weight: 54 kg

DRUGS (2)
  1. HIZENTRA [Suspect]
     Active Substance: HUMAN IMMUNOGLOBULIN G
     Indication: Immunodeficiency common variable
     Dosage: OTHER FREQUENCY : EVERY 2 WEEKS;?
     Route: 058
     Dates: start: 20230228, end: 20230316
  2. HIZENTRA [Suspect]
     Active Substance: HUMAN IMMUNOGLOBULIN G
     Indication: Immunodeficiency common variable
     Dosage: OTHER FREQUENCY : EVERY 2 WEEKS;?
     Route: 058
     Dates: start: 20230228, end: 20230316

REACTIONS (8)
  - Drug hypersensitivity [None]
  - Swollen tongue [None]
  - Refusal of treatment by patient [None]
  - Abdominal discomfort [None]
  - Back pain [None]
  - Headache [None]
  - Rhinorrhoea [None]
  - Therapeutic product effect incomplete [None]

NARRATIVE: CASE EVENT DATE: 20230228
